FAERS Safety Report 25664612 (Version 1)
Quarter: 2025Q3

REPORT INFORMATION
  Report Type: Spontaneous
  Country: GB (occurrence: GB)
  Receive Date: 20250811
  Receipt Date: 20250811
  Transmission Date: 20251020
  Serious: Yes (Other)
  Sender: ACCORD
  Company Number: None

PATIENT
  Sex: Female

DRUGS (3)
  1. QUETIAPINE [Suspect]
     Active Substance: QUETIAPINE
     Indication: Product used for unknown indication
     Dates: start: 20170401
  2. CARBAMAZEPINE [Concomitant]
     Active Substance: CARBAMAZEPINE
     Dates: start: 20150601
  3. CLONAZEPAM [Concomitant]
     Active Substance: CLONAZEPAM
     Dates: start: 20160601

REACTIONS (7)
  - Orthostatic hypotension [Not Recovered/Not Resolved]
  - Vertigo [Unknown]
  - Weight increased [Not Recovered/Not Resolved]
  - Tardive dyskinesia [Not Recovered/Not Resolved]
  - Menstruation irregular [Unknown]
  - Iron deficiency anaemia [Recovering/Resolving]
  - Urinary tract infection [Recovered/Resolved]

NARRATIVE: CASE EVENT DATE: 20210101
